FAERS Safety Report 8924491 (Version 2)
Quarter: 2013Q2

REPORT INFORMATION
  Report Type: Report from Study
  Country: FR (occurrence: FR)
  Receive Date: 20121126
  Receipt Date: 20130416
  Transmission Date: 20140414
  Serious: Yes (Other)
  Sender: FDA-Public Use
  Company Number: PHHY2012FR087898

PATIENT
  Age: 49 Year
  Sex: Male
  Weight: 90.5 kg

DRUGS (9)
  1. LAF237 [Suspect]
     Indication: DIABETES MELLITUS
     Dosage: UNK UKN, BID
     Dates: start: 20100619
  2. METFORMIN SANDOZ [Suspect]
     Dosage: 1000 MG, BID
     Dates: start: 20090606
  3. DIAMICRON [Suspect]
     Dosage: 30 MG, DAILY (0.5 DF DAILY)
     Dates: start: 20120922
  4. CRESTOR [Concomitant]
     Indication: DYSLIPIDAEMIA
     Dosage: 5 MG, QD
     Dates: start: 200802
  5. TRIATEC [Concomitant]
     Indication: HYPERTENSION
     Dosage: 5 MG, QD
     Dates: start: 200812
  6. DAONIL [Concomitant]
     Indication: DIABETES MELLITUS
     Dosage: 5 MG, TID
     Dates: start: 20080331, end: 20101220
  7. DAONIL [Concomitant]
     Dosage: 5 MG, BID
     Dates: start: 20101220
  8. KARDEGIC [Concomitant]
     Dosage: 75 MG, QD
  9. BISOPROLOL [Concomitant]
     Dosage: 5 MG, QD

REACTIONS (3)
  - Coronary artery insufficiency [Unknown]
  - Syncope [Recovered/Resolved]
  - Weight decreased [Unknown]
